FAERS Safety Report 14202781 (Version 1)
Quarter: 2017Q4

REPORT INFORMATION
  Report Type: Other
  Country: IT (occurrence: IT)
  Receive Date: 20171119
  Receipt Date: 20171119
  Transmission Date: 20180321
  Serious: Yes (Hospitalization, Other)
  Sender: FDA-Public Use
  Company Number: IT-DEXPHARM-20171670

PATIENT
  Age: 41 Year
  Sex: Male

DRUGS (5)
  1. METFORMIN [Suspect]
     Active Substance: METFORMIN HYDROCHLORIDE
  2. BISOPROLOL [Concomitant]
     Active Substance: BISOPROLOL
  3. VALSARTAN. [Concomitant]
     Active Substance: VALSARTAN
  4. OMEPRAZOLE. [Suspect]
     Active Substance: OMEPRAZOLE
  5. SITAGLIPTIN [Concomitant]
     Active Substance: SITAGLIPTIN

REACTIONS (4)
  - Hypomagnesaemia [Recovered/Resolved]
  - Wernicke^s encephalopathy [Recovered/Resolved]
  - Hypokalaemia [Recovered/Resolved]
  - Hypocalcaemia [Recovered/Resolved]
